FAERS Safety Report 23288785 (Version 1)
Quarter: 2023Q4

REPORT INFORMATION
  Report Type: Spontaneous
  Country: US (occurrence: None)
  Receive Date: 20231211
  Receipt Date: 20231211
  Transmission Date: 20240109
  Serious: Yes (Other)
  Sender: FDA-Public Use
  Company Number: None

PATIENT
  Age: 45 Year
  Sex: Female
  Weight: 106.65 kg

DRUGS (8)
  1. LATUDA [Suspect]
     Active Substance: LURASIDONE HYDROCHLORIDE
     Indication: Bipolar disorder
     Dosage: FREQUENCY : AT BEDTIME;?
     Route: 048
  2. CYMBALTA [Concomitant]
     Active Substance: DULOXETINE HYDROCHLORIDE
  3. FLONASE [Concomitant]
     Active Substance: FLUTICASONE PROPIONATE
  4. VITAMIN D [Concomitant]
     Active Substance: VITAMIN D NOS
  5. VITAMIN B [Concomitant]
     Active Substance: VITAMIN B
  6. MAGNESIUM [Concomitant]
     Active Substance: MAGNESIUM
  7. ZINC [Concomitant]
     Active Substance: PYRITHIONE ZINC\ZINC\ZINC CHLORIDE
  8. Deglycyrrhizinated licorice [Concomitant]

REACTIONS (3)
  - Memory impairment [None]
  - Memory impairment [None]
  - Somnolence [None]

NARRATIVE: CASE EVENT DATE: 20231211
